FAERS Safety Report 10062943 (Version 2)
Quarter: 2014Q2

REPORT INFORMATION
  Report Type: Spontaneous
  Country: JP (occurrence: JP)
  Receive Date: 20140407
  Receipt Date: 20140530
  Transmission Date: 20141212
  Serious: Yes (Hospitalization, Other)
  Sender: FDA-Public Use
  Company Number: JP-ABBVIE-14P-087-1218964-00

PATIENT
  Age: 83 Year
  Sex: Female
  Weight: 50 kg

DRUGS (14)
  1. HUMIRA [Suspect]
     Indication: RHEUMATOID ARTHRITIS
     Route: 058
     Dates: start: 20130702, end: 20130924
  2. HUMIRA [Suspect]
     Dates: start: 20131022
  3. PROGRAF [Suspect]
     Indication: RHEUMATOID ARTHRITIS
     Dates: end: 20131011
  4. PROGRAF [Suspect]
     Dates: start: 20131022
  5. RHEUMATREX [Suspect]
     Indication: RHEUMATOID ARTHRITIS
     Dosage: 6 MG ON THURSDAYS AND 4 MG ON FRIDAYS
     Dates: end: 20131011
  6. RHEUMATREX [Suspect]
     Dosage: 6 MG ON THURSDAYS AND 4 MG ON FRIDAYS
     Dates: start: 20131022
  7. PREDNISOLONE [Concomitant]
     Indication: RHEUMATOID ARTHRITIS
     Route: 048
     Dates: start: 200105
  8. PREDNISOLONE [Concomitant]
     Dates: start: 20030723, end: 20030728
  9. PREDNISOLONE [Concomitant]
     Dates: start: 20030729
  10. ALENDRONATE SODIUM [Concomitant]
     Indication: OSTEOPOROSIS
  11. LANSOPRAZOLE [Concomitant]
     Indication: GASTRITIS
  12. DILTIAZEM HYDROCHLORIDE [Concomitant]
     Indication: HYPERTENSION
  13. SALMETEROL XINAFOATE [Concomitant]
     Indication: ASTHMA
     Route: 055
  14. FLUTICASONE PROPIONATE [Concomitant]
     Indication: ASTHMA
     Route: 055

REACTIONS (11)
  - Panniculitis [Recovering/Resolving]
  - Blood lactate dehydrogenase increased [Unknown]
  - C-reactive protein abnormal [Recovering/Resolving]
  - Pyrexia [Recovering/Resolving]
  - Arthralgia [Unknown]
  - Toxicity to various agents [Recovered/Resolved]
  - Rheumatoid arthritis [Recovering/Resolving]
  - Soft tissue infection [Recovering/Resolving]
  - Fistula [Unknown]
  - Anal abscess [Recovering/Resolving]
  - Dementia [Unknown]
